FAERS Safety Report 5424913-7 (Version None)
Quarter: 2007Q3

REPORT INFORMATION
  Report Type: 
  Country: None (occurrence: None)
  Receive Date: 20070824
  Receipt Date: 20070823
  Transmission Date: 20080115
  Serious: Yes (Hospitalization)
  Sender: FDA-Public Use
  Company Number: US-ASTRAZENECA-2007UW20170

PATIENT
  Sex: Male

DRUGS (3)
  1. SEROQUEL [Suspect]
     Indication: DRUG INTERACTION
     Route: 048
  2. LAMICTAL [Suspect]
     Indication: DRUG INTERACTION
  3. REQUIP [Suspect]
     Indication: DRUG INTERACTION

REACTIONS (1)
  - MENTAL DISORDER [None]
